FAERS Safety Report 15345306 (Version 1)
Quarter: 2018Q3

REPORT INFORMATION
  Report Type: Spontaneous
  Country: GB (occurrence: GB)
  Receive Date: 20180903
  Receipt Date: 20180903
  Transmission Date: 20181010
  Serious: Yes (Other)
  Sender: FDA-Public Use
  Company Number: GB-GLAXOSMITHKLINE-GB2018155706

PATIENT
  Age: 35 Year
  Weight: 94 kg

DRUGS (2)
  1. ESTROGENS CONJUGATED [Concomitant]
     Active Substance: ESTROGENS, CONJUGATED
     Indication: HYSTEROSALPINGO-OOPHORECTOMY
     Dosage: 625 ?G, UNK
     Route: 048
     Dates: start: 20131016
  2. ORLISTAT. [Suspect]
     Active Substance: ORLISTAT
     Indication: OBESITY
     Dosage: 120 MG, UNK
     Route: 048
     Dates: start: 20180525

REACTIONS (1)
  - Dermatitis bullous [Unknown]
